FAERS Safety Report 10675644 (Version 1)
Quarter: 2014Q4

REPORT INFORMATION
  Report Type: Spontaneous
  Country: DE (occurrence: DE)
  Receive Date: 20141224
  Receipt Date: 20141224
  Transmission Date: 20150529
  Serious: Yes (Other)
  Sender: FDA-Public Use
  Company Number: DE-WATSON-2014-27462

PATIENT
  Age: 1 Day
  Sex: Male
  Weight: 1.95 kg

DRUGS (7)
  1. CEFUROXIM                          /00454602/ [Concomitant]
     Active Substance: CEFUROXIME
     Indication: INFECTION PROPHYLAXIS
     Dosage: UNK
     Route: 064
  2. GABAPENTIN (UNKNOWN) [Suspect]
     Active Substance: GABAPENTIN
     Dosage: 350 MG, DAILY
     Route: 064
     Dates: start: 20131006, end: 20140629
  3. SERTRALINE [Suspect]
     Active Substance: SERTRALINE HYDROCHLORIDE
     Indication: DEPRESSION
     Dosage: 200 MG, DAILY
     Route: 064
     Dates: start: 20131006, end: 20140629
  4. GABAPENTIN (UNKNOWN) [Suspect]
     Active Substance: GABAPENTIN
     Dosage: 400 UNK, UNK
     Route: 064
     Dates: start: 20131006, end: 20140629
  5. FOLSAEURE [Concomitant]
     Active Substance: FOLIC ACID
     Indication: PROPHYLAXIS OF NEURAL TUBE DEFECT
     Dosage: UNK
     Route: 064
  6. DIPHENHYDRAMINE (UNKNOWN) [Suspect]
     Active Substance: DIPHENHYDRAMINE
     Indication: ANXIETY DISORDER
     Dosage: 50 MG, DAILY
     Route: 064
     Dates: start: 20131006, end: 20140629
  7. GABAPENTIN (UNKNOWN) [Suspect]
     Active Substance: GABAPENTIN
     Indication: RESTLESS LEGS SYNDROME
     Dosage: 400 MG, DAILY
     Route: 064
     Dates: start: 20131006, end: 20140629

REACTIONS (6)
  - Foetal exposure during pregnancy [Recovered/Resolved]
  - Small for dates baby [Unknown]
  - Temperature regulation disorder [Recovered/Resolved]
  - Feeding disorder neonatal [Unknown]
  - Respiratory disorder neonatal [Recovered/Resolved]
  - Microcephaly [Unknown]

NARRATIVE: CASE EVENT DATE: 20140629
